FAERS Safety Report 24683440 (Version 1)
Quarter: 2024Q4

REPORT INFORMATION
  Report Type: Spontaneous
  Country: US (occurrence: US)
  Receive Date: 20241201
  Receipt Date: 20241201
  Transmission Date: 20250115
  Serious: No
  Sender: APELLIS PHARMACEUTICALS
  Company Number: US-APELLIS-2024-APL-0001572

PATIENT

DRUGS (1)
  1. EMPAVELI [Suspect]
     Active Substance: PEGCETACOPLAN
     Indication: Glomerulonephritis membranoproliferative
     Dosage: 1080 MG/KG TWICE WEEKLY
     Route: 058
     Dates: start: 20241126

REACTIONS (2)
  - Diarrhoea [Recovered/Resolved with Sequelae]
  - Off label use [Unknown]

NARRATIVE: CASE EVENT DATE: 20241126
